FAERS Safety Report 8188223-X (Version None)
Quarter: 2012Q1

REPORT INFORMATION
  Report Type: 
  Country: None (occurrence: None)
  Receive Date: 20120221
  Receipt Date: 20101229
  Transmission Date: 20120608
  Serious: Yes (Other)
  Sender: FDA-Public Use
  Company Number: PHHY2010US89857

PATIENT
  Age: 27 Year
  Sex: Male

DRUGS (1)
  1. TOBI [Suspect]
     Indication: CYSTIC FIBROSIS
     Dosage: 300 MG, INHALATION
     Route: 055
     Dates: start: 20101001, end: 20101001

REACTIONS (2)
  - APHONIA [None]
  - SPEECH DISORDER [None]
